FAERS Safety Report 18724237 (Version 1)
Quarter: 2021Q1

REPORT INFORMATION
  Report Type: Spontaneous
  Country: US (occurrence: US)
  Receive Date: 20210109
  Receipt Date: 20210109
  Transmission Date: 20210419
  Serious: Yes (Life-Threatening)
  Sender: FDA-Public Use
  Company Number: None

PATIENT
  Age: 44 Year
  Sex: Female
  Weight: 148.05 kg

DRUGS (31)
  1. AMITRIPTYLINE [Concomitant]
     Active Substance: AMITRIPTYLINE
  2. FISH OIL [Concomitant]
     Active Substance: FISH OIL
  3. MELATONIN [Concomitant]
     Active Substance: MELATONIN
  4. SUCRALFATE. [Concomitant]
     Active Substance: SUCRALFATE
  5. VALSARTAN. [Concomitant]
     Active Substance: VALSARTAN
  6. ALBUTEROL SULFATE INHALER [Concomitant]
     Active Substance: ALBUTEROL SULFATE
  7. LITHIUM CARBONATE. [Concomitant]
     Active Substance: LITHIUM CARBONATE
  8. MIRALAX [Concomitant]
     Active Substance: POLYETHYLENE GLYCOL 3350
  9. PANTOPRAZOLE [Concomitant]
     Active Substance: PANTOPRAZOLE
  10. RIZATRIPTAN. [Concomitant]
     Active Substance: RIZATRIPTAN
  11. TIZANIDINE. [Concomitant]
     Active Substance: TIZANIDINE
  12. NEBULIZER [Concomitant]
     Active Substance: DEVICE
  13. CLONAZEPAM. [Concomitant]
     Active Substance: CLONAZEPAM
  14. VITAMIN D3 [Concomitant]
     Active Substance: CHOLECALCIFEROL
  15. ATORVASTATIN [Concomitant]
     Active Substance: ATORVASTATIN
  16. ETHACRYNIC ACID. [Concomitant]
     Active Substance: ETHACRYNIC ACID
  17. FLUTICASONE PROPIONATE NASAL SPRAY [Concomitant]
     Active Substance: FLUTICASONE PROPIONATE
  18. MAGNESIUM [Concomitant]
     Active Substance: MAGNESIUM
  19. WOMAN^S DAILY VITAMIN [Concomitant]
  20. AMANTADINE. [Concomitant]
     Active Substance: AMANTADINE HYDROCHLORIDE
  21. DIAZEPAM. [Concomitant]
     Active Substance: DIAZEPAM
  22. NALTREXONE [Concomitant]
     Active Substance: NALTREXONE
  23. PRAZOSIN. [Concomitant]
     Active Substance: PRAZOSIN
  24. DIVALPROEX [Concomitant]
     Active Substance: DIVALPROEX SODIUM
  25. VITAMIN C [Concomitant]
     Active Substance: ASCORBIC ACID
  26. BAG BALM [Suspect]
     Active Substance: OXYQUINOLINE SULFATE
     Indication: DRY SKIN
     Route: 061
     Dates: start: 20210101, end: 20210108
  27. METFORMIN [Concomitant]
     Active Substance: METFORMIN HYDROCHLORIDE
  28. PROPRANOLOL [Concomitant]
     Active Substance: PROPRANOLOL HYDROCHLORIDE
  29. TYLENOL ARTHRITIS PAIN [Concomitant]
     Active Substance: ACETAMINOPHEN
  30. DUO?NEB [Concomitant]
  31. LEVOTHYROXINE. [Concomitant]
     Active Substance: LEVOTHYROXINE

REACTIONS (5)
  - Dyspnoea [None]
  - Speech disorder [None]
  - Wheezing [None]
  - Cough [None]
  - Pruritus [None]

NARRATIVE: CASE EVENT DATE: 20210107
